FAERS Safety Report 12406198 (Version 1)
Quarter: 2016Q2

REPORT INFORMATION
  Report Type: Spontaneous
  Country: US (occurrence: None)
  Receive Date: 20160525
  Receipt Date: 20160525
  Transmission Date: 20160815
  Serious: Yes (Hospitalization)
  Sender: FDA-Public Use
  Company Number: None

PATIENT
  Age: 64 Year
  Sex: Male

DRUGS (23)
  1. PREDNISONE. [Concomitant]
     Active Substance: PREDNISONE
  2. MARINOL [Concomitant]
     Active Substance: DRONABINOL
  3. LUPRON DEPOT [Suspect]
     Active Substance: LEUPROLIDE ACETATE
     Indication: PROSTATE CANCER
     Dosage: 30MG EVERY 4 MONTHS IM
     Route: 030
  4. SIMVASTATIN. [Concomitant]
     Active Substance: SIMVASTATIN
  5. MORPHINE [Concomitant]
     Active Substance: MORPHINE
  6. CHLORZOXAZON [Concomitant]
  7. ONE TOUCH METER [Concomitant]
  8. SENNA LAXATIVE [Concomitant]
     Active Substance: SENNOSIDES
  9. LOVENOX [Concomitant]
     Active Substance: ENOXAPARIN SODIUM
  10. COMPAZINE [Concomitant]
     Active Substance: PROCHLORPERAZINE MALEATE
  11. CIALIS [Concomitant]
     Active Substance: TADALAFIL
  12. SYNTHROID [Concomitant]
     Active Substance: LEVOTHYROXINE SODIUM
  13. ACTOS [Concomitant]
     Active Substance: PIOGLITAZONE HYDROCHLORIDE
  14. ONE TOUCH LANCETS [Concomitant]
  15. NIACIN. [Concomitant]
     Active Substance: NIACIN
  16. OXYCODONE [Concomitant]
     Active Substance: OXYCODONE
  17. EFFEXOR [Concomitant]
     Active Substance: VENLAFAXINE HYDROCHLORIDE
  18. LEVOTHYROXINE. [Concomitant]
     Active Substance: LEVOTHYROXINE
  19. ONE TOUCH TEST STRIPS [Concomitant]
  20. AMLODIPINE [Concomitant]
     Active Substance: AMLODIPINE BESYLATE
  21. XTANDI [Concomitant]
     Active Substance: ENZALUTAMIDE
  22. METFORMIN [Concomitant]
     Active Substance: METFORMIN HYDROCHLORIDE
  23. VITAMIN D [Concomitant]
     Active Substance: CHOLECALCIFEROL

REACTIONS (1)
  - Intestinal obstruction [None]

NARRATIVE: CASE EVENT DATE: 201605
